FAERS Safety Report 9795386 (Version 1)
Quarter: 2014Q1

REPORT INFORMATION
  Report Type: Spontaneous
  Country: US (occurrence: US)
  Receive Date: 20140103
  Receipt Date: 20140103
  Transmission Date: 20141002
  Serious: No
  Sender: FDA-Public Use
  Company Number: US-BAYER-2014-000704

PATIENT
  Sex: Female
  Weight: 63.49 kg

DRUGS (12)
  1. BETASERON [Suspect]
     Indication: MULTIPLE SCLEROSIS
  2. DIMETHYL FUMARATE [Concomitant]
     Dosage: UNK
  3. LANTUS [Concomitant]
     Dosage: UNK
  4. METFORMIN [Concomitant]
     Dosage: UNK
  5. GABAPENTIN [Concomitant]
     Dosage: UNK
  6. LEVOTHYROXINE [Concomitant]
     Dosage: UNK
  7. VITAMIN D [Concomitant]
     Dosage: UNK
  8. SERTRALINE [Concomitant]
     Dosage: UNK
     Dates: start: 1995
  9. HUMALOG [Concomitant]
     Dosage: UNK
  10. TRAZODONE [Concomitant]
     Dosage: UNK
  11. PROAIR HFA [Concomitant]
     Dosage: UNK
  12. CLARITHROMYCIN [Concomitant]
     Dosage: UNK

REACTIONS (1)
  - Depression [None]
